FAERS Safety Report 14392369 (Version 1)
Quarter: 2018Q1

REPORT INFORMATION
  Report Type: Spontaneous
  Country: SE (occurrence: SE)
  Receive Date: 20180116
  Receipt Date: 20180116
  Transmission Date: 20180509
  Serious: Yes (Hospitalization)
  Sender: FDA-Public Use
  Company Number: PHHY2018SE003837

PATIENT
  Age: 40 Year
  Sex: Female

DRUGS (1)
  1. ENALAPRIL [Suspect]
     Active Substance: ENALAPRIL
     Indication: PRODUCT USED FOR UNKNOWN INDICATION
     Route: 065

REACTIONS (10)
  - Paraesthesia [Unknown]
  - Hyperhidrosis [Unknown]
  - Derealisation [Unknown]
  - Muscle spasms [Unknown]
  - Hypoaesthesia [Unknown]
  - Dizziness [Unknown]
  - Fatigue [Unknown]
  - Sensory disturbance [Unknown]
  - Sleep disorder [Unknown]
  - Nausea [Unknown]
